FAERS Safety Report 4742247-0 (Version None)
Quarter: 2005Q3

REPORT INFORMATION
  Report Type: 
  Country: None (occurrence: None)
  Receive Date: 20050811
  Receipt Date: 20050328
  Transmission Date: 20060218
  Serious: No
  Sender: FDA-Public Use
  Company Number: US-GLAXOSMITHKLINE-A0551494A

PATIENT
  Age: 52 Year
  Sex: Male

DRUGS (3)
  1. PAXIL CR [Suspect]
     Indication: DEPRESSION
     Dosage: 50MG PER DAY
     Route: 048
  2. DURAGESIC-100 [Concomitant]
  3. NADOLOL [Concomitant]

REACTIONS (4)
  - AFFECT LABILITY [None]
  - DEPRESSION [None]
  - DIARRHOEA [None]
  - SLEEP DISORDER [None]
